FAERS Safety Report 9295741 (Version 4)
Quarter: 2014Q1

REPORT INFORMATION
  Report Type: Spontaneous
  Country: US (occurrence: None)
  Receive Date: 20121227
  Receipt Date: 20131226
  Transmission Date: 20141002
  Serious: Yes (Hospitalization, Other)
  Sender: FDA-Public Use
  Company Number: PHEH2012US022751

PATIENT
  Age: 80 Year
  Sex: Female
  Weight: 57.1 kg

DRUGS (8)
  1. AFINITOR (RAD) [Suspect]
     Indication: BREAST CANCER FEMALE
     Route: 048
     Dates: start: 20120918, end: 20121207
  2. EXEMESTANE (EXEMESTANE) [Concomitant]
  3. ATENOLOL (ATENOLOL) [Concomitant]
  4. OXYBUTYNIN (OXYBUTYNIN) [Concomitant]
  5. SIMVASTATIN (SIMVASTATIN) [Concomitant]
  6. FISH OIL (FISH OIL) [Concomitant]
  7. VITAMIN D (ERGOCALCIFEROL) [Concomitant]
  8. VITAMIN B12 (CYANOCOBALAMIN) [Concomitant]

REACTIONS (7)
  - Tumour marker increased [None]
  - Drug ineffective [None]
  - Oral pain [None]
  - Interstitial lung disease [None]
  - Stomatitis [None]
  - Nausea [None]
  - Dyspnoea [None]
